FAERS Safety Report 21274098 (Version 1)
Quarter: 2022Q3

REPORT INFORMATION
  Report Type: Spontaneous
  Country: US (occurrence: None)
  Receive Date: 20220830
  Receipt Date: 20220830
  Transmission Date: 20221027
  Serious: Yes (unspecified)
  Sender: FDA-Public Use
  Company Number: None

PATIENT
  Sex: 0

DRUGS (2)
  1. MYRBETRIQ [Suspect]
     Active Substance: MIRABEGRON
  2. MYRBETRIQ [Suspect]
     Active Substance: MIRABEGRON

REACTIONS (2)
  - Urge incontinence [None]
  - Drug ineffective [None]
